FAERS Safety Report 17251789 (Version 1)
Quarter: 2020Q1

REPORT INFORMATION
  Report Type: Spontaneous
  Country: FR (occurrence: FR)
  Receive Date: 20200109
  Receipt Date: 20200109
  Transmission Date: 20200409
  Serious: Yes (Hospitalization)
  Sender: FDA-Public Use
  Company Number: FR-MYLANLABS-2020M1001613

PATIENT
  Age: 4 Month
  Sex: Female
  Weight: 7 kg

DRUGS (1)
  1. ACEBUTOLOL [Suspect]
     Active Substance: ACEBUTOLOL
     Indication: HAEMANGIOMA
     Dosage: UNK
     Route: 048
     Dates: start: 20150331, end: 20150608

REACTIONS (2)
  - Bronchiolitis [Recovered/Resolved]
  - Cough [Recovered/Resolved]

NARRATIVE: CASE EVENT DATE: 20150608
